FAERS Safety Report 6817104-6 (Version None)
Quarter: 2010Q2

REPORT INFORMATION
  Report Type: 
  Country: None (occurrence: None)
  Receive Date: 20100630
  Receipt Date: 20100622
  Transmission Date: 20101027
  Serious: Yes (Death)
  Sender: FDA-Public Use
  Company Number: 2010US002355

PATIENT
  Age: 58 Year
  Sex: Female

DRUGS (5)
  1. PROGRAF [Suspect]
     Indication: RENAL TRANSPLANT
     Dosage: 6 MG,
     Dates: start: 20091111
  2. PREDNISONE (PREDNISONE) FORMULATION UNKNOWN [Concomitant]
  3. MYCOPHENOLATE (MYCOPHENOLATE MOFETIL) FORMULATION UNKNOWN [Concomitant]
  4. OMEPRAZOL (OMEPRAZOLE) FORMULATION UNKNOWN [Concomitant]
  5. TRIMETOPRIM (TRIMETHOPRIM) FORMULATION UNKNOWN [Concomitant]

REACTIONS (1)
  - PERITONITIS [None]
